FAERS Safety Report 8321133-3 (Version None)
Quarter: 2012Q2

REPORT INFORMATION
  Report Type: 
  Country: None (occurrence: None)
  Receive Date: 20120430
  Receipt Date: 20120423
  Transmission Date: 20120825
  Serious: Yes (Other)
  Sender: FDA-Public Use
  Company Number: US-JNJFOC-20120403699

PATIENT
  Sex: Male
  Weight: 74.84 kg

DRUGS (7)
  1. NITROGLYCERIN [Concomitant]
     Indication: DYSPNOEA
     Route: 060
  2. NITROGLYCERIN [Concomitant]
     Dosage: ONCE A MONTH AS NEEDED
     Route: 060
     Dates: start: 19920101
  3. NITROSTAT [Concomitant]
     Route: 048
  4. NITROGLYCERIN [Concomitant]
     Indication: OESOPHAGEAL DISORDER
     Dosage: ONCE A MONTH AS NEEDED
     Route: 060
     Dates: start: 19920101
  5. LEVAQUIN [Suspect]
     Indication: PROSTATE INFECTION
     Route: 048
     Dates: start: 20110121, end: 20110127
  6. NITROGLYCERIN [Concomitant]
     Route: 060
  7. LEVAQUIN [Suspect]
     Indication: URINARY TRACT INFECTION
     Route: 048
     Dates: start: 20110121, end: 20110127

REACTIONS (16)
  - HYPERSENSITIVITY [None]
  - LIP SWELLING [None]
  - EPISTAXIS [None]
  - FEELING ABNORMAL [None]
  - HYPOAESTHESIA [None]
  - FALL [None]
  - ASTHENIA [None]
  - HEART RATE IRREGULAR [None]
  - HEADACHE [None]
  - DIZZINESS [None]
  - EYE DISORDER [None]
  - MOUTH HAEMORRHAGE [None]
  - NIGHTMARE [None]
  - DYSPNOEA [None]
  - BODY HEIGHT DECREASED [None]
  - ABASIA [None]
